FAERS Safety Report 4744012-7 (Version None)
Quarter: 2005Q3

REPORT INFORMATION
  Report Type: 
  Country: None (occurrence: None)
  Receive Date: 20050801
  Receipt Date: 20041118
  Transmission Date: 20060218
  Serious: Yes (Hospitalization)
  Sender: FDA-Public Use
  Company Number: 210748

PATIENT
  Age: 61 Year
  Sex: Male

DRUGS (2)
  1. RITUXAN [Suspect]
     Indication: CHRONIC LYMPHOCYTIC LEUKAEMIA
     Dosage: 375 MG/M2, 1/MONTH, UNK
     Dates: start: 20040101, end: 20040601
  2. CYCLOPHOSPHAMIDE [Concomitant]

REACTIONS (1)
  - SALMONELLOSIS [None]
